FAERS Safety Report 6895585-X (Version None)
Quarter: 2010Q3

REPORT INFORMATION
  Report Type: 
  Country: None (occurrence: None)
  Receive Date: 20100802
  Receipt Date: 20100728
  Transmission Date: 20110219
  Serious: Yes (Death)
  Sender: FDA-Public Use
  Company Number: PHHY2010IN49234

PATIENT
  Age: 11 Year
  Sex: Male

DRUGS (2)
  1. ASUNRA [Suspect]
     Dosage: 400 MG, ONE TABLET
     Route: 048
  2. ASUNRA [Suspect]
     Dosage: 100 MG, ONE TABLET
     Route: 048

REACTIONS (1)
  - PHARYNGITIS [None]
